FAERS Safety Report 6793264-0 (Version None)
Quarter: 2010Q2

REPORT INFORMATION
  Report Type: 
  Country: None (occurrence: None)
  Receive Date: 20100624
  Receipt Date: 20091104
  Transmission Date: 20101027
  Serious: Yes (Other)
  Sender: FDA-Public Use
  Company Number: US-MYLANLABS-2009S1017650

PATIENT
  Age: 64 Year
  Sex: Male

DRUGS (2)
  1. CLOZAPINE [Suspect]
     Dosage: 25MG
     Route: 048
     Dates: start: 20090824, end: 20091002
  2. TAXOTERE [Suspect]
     Indication: PROSTATE CANCER METASTATIC
     Dates: start: 20090901

REACTIONS (2)
  - GRANULOCYTOPENIA [None]
  - LEUKOPENIA [None]
